FAERS Safety Report 19977531 (Version 5)
Quarter: 2022Q4

REPORT INFORMATION
  Report Type: Spontaneous
  Country: JP (occurrence: JP)
  Receive Date: 20211021
  Receipt Date: 20221028
  Transmission Date: 20230112
  Serious: Yes (Hospitalization)
  Sender: FDA-Public Use
  Company Number: JP-NOVOPROD-857363

PATIENT
  Age: 50 Year
  Sex: Male
  Weight: 81 kg

DRUGS (10)
  1. NOVORAPID [Suspect]
     Active Substance: INSULIN ASPART
     Dosage: DECREASED DOSAGE
     Route: 058
     Dates: start: 20211004
  2. NOVORAPID [Suspect]
     Active Substance: INSULIN ASPART
     Indication: Type 1 diabetes mellitus
     Dosage: UNK
     Route: 058
     Dates: start: 20210628
  3. INSULIN GLARGINE [Concomitant]
     Active Substance: INSULIN GLARGINE
     Dosage: 5 IU, QD
     Dates: start: 20180120, end: 20210627
  4. HUMALOG [Concomitant]
     Active Substance: INSULIN LISPRO
     Dosage: 5 IU, BID
     Dates: start: 20180120, end: 20201125
  5. NOVOLIN R [Concomitant]
     Active Substance: INSULIN HUMAN
     Dosage: 28.7,U,1 SINGLE DOSE ONLY
     Dates: start: 20211004, end: 20211004
  6. FIASP [Concomitant]
     Active Substance: INSULIN ASPART
     Indication: Type 1 diabetes mellitus
     Dosage: 5 IU, QD
     Route: 058
     Dates: start: 20200217, end: 20201125
  7. FIASP [Concomitant]
     Active Substance: INSULIN ASPART
     Dosage: 4.0 IU, BID
     Dates: start: 20220625
  8. FIASP [Concomitant]
     Active Substance: INSULIN ASPART
     Dosage: 3.0 IU, QD
     Dates: start: 20220625
  9. FIASP [Concomitant]
     Active Substance: INSULIN ASPART
     Dosage: 6.0,U,THRICE DAILY
     Route: 058
     Dates: start: 20201126, end: 20210627
  10. TRESIBA [Concomitant]
     Active Substance: INSULIN DEGLUDEC
     Dosage: 4.0 IU, QD
     Dates: start: 20220625

REACTIONS (1)
  - Obesity [Not Recovered/Not Resolved]

NARRATIVE: CASE EVENT DATE: 20210906
